FAERS Safety Report 19200021 (Version 4)
Quarter: 2021Q2

REPORT INFORMATION
  Report Type: Spontaneous
  Country: JP (occurrence: JP)
  Receive Date: 20210430
  Receipt Date: 20210607
  Transmission Date: 20210717
  Serious: Yes (Life-Threatening, Hospitalization, Other)
  Sender: FDA-Public Use
  Company Number: JP-GLAXOSMITHKLINE-JP2021092172

PATIENT
  Age: 80 Year
  Sex: Female
  Weight: 40.5 kg

DRUGS (4)
  1. MONTELUKAST SODIUM TABLET [Concomitant]
     Active Substance: MONTELUKAST SODIUM
     Dosage: 10 MG, QD, AFTER DINNER
     Route: 048
     Dates: start: 20180618
  2. SERETIDE [Suspect]
     Active Substance: FLUTICASONE PROPIONATE\SALMETEROL XINAFOATE
     Indication: ASTHMA
     Dosage: 1 INHALATION, BID
     Route: 055
     Dates: start: 20210317, end: 20210426
  3. QVAR [Concomitant]
     Active Substance: BECLOMETHASONE DIPROPIONATE
     Indication: ASTHMA
     Dosage: 15 MG, BID, 1 INHALATION
     Route: 055
     Dates: start: 20170728
  4. THEOPHYLLINE [Concomitant]
     Active Substance: THEOPHYLLINE ANHYDROUS
     Indication: ASTHMA
     Dosage: UNK
     Route: 048
     Dates: start: 20180412, end: 20210317

REACTIONS (5)
  - Eosinophil count increased [Unknown]
  - Blood immunoglobulin E increased [Unknown]
  - Eosinophilic granulomatosis with polyangiitis [Unknown]
  - Lung infiltration [Unknown]
  - White blood cell count increased [Unknown]

NARRATIVE: CASE EVENT DATE: 20210423
